FAERS Safety Report 13994355 (Version 1)
Quarter: 2017Q3

REPORT INFORMATION
  Report Type: Spontaneous
  Country: US (occurrence: US)
  Receive Date: 20170920
  Receipt Date: 20170920
  Transmission Date: 20171128
  Serious: Yes (Other)
  Sender: FDA-Public Use
  Company Number: None

PATIENT
  Age: 72 Year
  Sex: Female
  Weight: 54.9 kg

DRUGS (5)
  1. CALCIUM [Concomitant]
     Active Substance: CALCIUM
  2. PROLIA [Suspect]
     Active Substance: DENOSUMAB
     Indication: OSTEOPOROSIS
     Dosage: ?          OTHER FREQUENCY:EVERY SIX MONTHS;?
     Route: 030
     Dates: start: 20161108, end: 20170508
  3. MULTI VITAMIN [Concomitant]
     Active Substance: VITAMINS
  4. STRONTIUM [Concomitant]
     Active Substance: STRONTIUM
  5. BORON [Concomitant]
     Active Substance: BORON

REACTIONS (4)
  - Paraesthesia [None]
  - Pain in extremity [None]
  - Arthralgia [None]
  - Gait disturbance [None]

NARRATIVE: CASE EVENT DATE: 20170508
